FAERS Safety Report 5722889-6 (Version None)
Quarter: 2008Q2

REPORT INFORMATION
  Report Type: 
  Country: None (occurrence: None)
  Receive Date: 20080425
  Receipt Date: 20080415
  Transmission Date: 20081010
  Serious: Yes (Death, Other)
  Sender: FDA-Public Use
  Company Number: 026864

PATIENT
  Age: 44 Year

DRUGS (4)
  1. CYCLOBENZAPRINE (CYCLOBENZPRINE HYDROCHLORIDE) TABLET, 10MG [Suspect]
     Dosage: ORAL
     Route: 048
  2. DOXEPIN HCL [Suspect]
     Dosage: ORAL
     Route: 048
  3. ACETAMINOPHEN W/PROPOXPHENE (PROPOXYPHENE, ACETAMINOPHEN) [Suspect]
     Dosage: ORAL
     Route: 048
  4. UNSPECIFIED DRUGS (UNSPECIFIED DRUGS) [Suspect]
     Dosage: ORAL
     Route: 048

REACTIONS (3)
  - CARDIAC ARREST [None]
  - COMPLETED SUICIDE [None]
  - RESPIRATORY ARREST [None]
